FAERS Safety Report 4728014-2 (Version None)
Quarter: 2005Q3

REPORT INFORMATION
  Report Type: 
  Country: None (occurrence: None)
  Receive Date: 20050725
  Receipt Date: 20050405
  Transmission Date: 20060218
  Serious: No
  Sender: FDA-Public Use
  Company Number: USA050494940

PATIENT
  Age: 56 Year
  Sex: Female

DRUGS (1)
  1. STRATTERA [Suspect]
     Indication: DISTURBANCE IN ATTENTION
     Dosage: 40 MG
     Dates: start: 20050101, end: 20050101

REACTIONS (2)
  - SENSATION OF HEAVINESS [None]
  - SOMNOLENCE [None]
